FAERS Safety Report 10977729 (Version 1)
Quarter: 2015Q2

REPORT INFORMATION
  Report Type: Spontaneous
  Country: US (occurrence: None)
  Receive Date: 20150401
  Receipt Date: 20150401
  Transmission Date: 20150821
  Serious: Yes (Disabling)
  Sender: FDA-Public Use
  Company Number: None

PATIENT
  Age: 52 Year
  Sex: Female
  Weight: 54.43 kg

DRUGS (7)
  1. CIPROFLOXACIN. [Suspect]
     Active Substance: CIPROFLOXACIN
     Indication: CYSTITIS
     Route: 048
  2. VITAMIN C [Concomitant]
     Active Substance: ASCORBIC ACID
  3. CIPROFLOXACIN. [Suspect]
     Active Substance: CIPROFLOXACIN
     Indication: URINARY TRACT INFECTION
     Route: 048
  4. XANAX [Concomitant]
     Active Substance: ALPRAZOLAM
  5. NORCO [Concomitant]
     Active Substance: ACETAMINOPHEN\HYDROCODONE BITARTRATE
  6. CLONOPINE [Concomitant]
  7. VITAMIN D [Concomitant]
     Active Substance: CHOLECALCIFEROL

REACTIONS (4)
  - Tinnitus [None]
  - Gingival pain [None]
  - Burning sensation [None]
  - Peripheral coldness [None]

NARRATIVE: CASE EVENT DATE: 20140905
